FAERS Safety Report 8849991 (Version 2)
Quarter: 2012Q4

REPORT INFORMATION
  Report Type: 
  Country: BE (occurrence: BE)
  Receive Date: 20121019
  Receipt Date: 20121206
  Transmission Date: 20130627
  Serious: Yes (Life-Threatening, Hospitalization, Other)
  Sender: FDA-Public Use
  Company Number: BE-ROCHE-1140499

PATIENT
  Age: 21 Year
  Sex: Male
  Weight: 73 kg

DRUGS (6)
  1. ROACTEMRA [Suspect]
     Indication: JUVENILE ARTHRITIS
     Route: 042
     Dates: start: 200807
  2. ROACTEMRA [Suspect]
     Dosage: On 30/May/2012, last infusion was done at a dose 8 mg/kg
     Route: 065
  3. MOBIC [Concomitant]
     Route: 048
     Dates: start: 20120108
  4. MOBIC [Concomitant]
     Route: 048
  5. DAFALGAN [Concomitant]
     Route: 048
     Dates: start: 20120314
  6. CACIT 1000 [Concomitant]
     Dosage: CACIT D3 1000/880
     Route: 048
     Dates: start: 20110513

REACTIONS (3)
  - Histiocytosis haematophagic [Recovered/Resolved with Sequelae]
  - Epstein-Barr virus infection [Recovered/Resolved with Sequelae]
  - Hepatic haemorrhage [Unknown]
